FAERS Safety Report 19563048 (Version 8)
Quarter: 2025Q1

REPORT INFORMATION
  Report Type: Other
  Country: CA (occurrence: CA)
  Receive Date: 20210714
  Receipt Date: 20250205
  Transmission Date: 20250409
  Serious: Yes (Hospitalization, Other)
  Sender: TOLMAR
  Company Number: CA-TOLMAR, INC.-21CA027213

PATIENT
  Sex: Male

DRUGS (10)
  1. ELIGARD [Suspect]
     Active Substance: LEUPROLIDE ACETATE
     Indication: Prostate cancer
     Dosage: 45 MILLIGRAM, Q 6 MONTH
     Route: 058
     Dates: start: 20190612
  2. ELIGARD [Suspect]
     Active Substance: LEUPROLIDE ACETATE
     Dosage: 45 MILLIGRAM, Q 6 MONTH
     Route: 058
     Dates: start: 20230314
  3. ELIGARD [Suspect]
     Active Substance: LEUPROLIDE ACETATE
     Dosage: 45 MILLIGRAM, Q 6 MONTH
     Route: 058
     Dates: start: 20240801
  4. ELIGARD [Suspect]
     Active Substance: LEUPROLIDE ACETATE
     Dosage: 45 MILLIGRAM, Q 6 MONTH
     Route: 058
     Dates: start: 20230829
  5. ELIGARD [Suspect]
     Active Substance: LEUPROLIDE ACETATE
     Dosage: 45 MILLIGRAM, Q 6 MONTH
     Route: 058
     Dates: start: 20240213
  6. ELIGARD [Suspect]
     Active Substance: LEUPROLIDE ACETATE
     Dosage: 45 MILLIGRAM, Q 6 MONTH
     Route: 058
     Dates: start: 20210505
  7. ELIGARD [Suspect]
     Active Substance: LEUPROLIDE ACETATE
     Dosage: 45 MILLIGRAM, Q 6 MONTH
     Route: 058
     Dates: start: 20220930
  8. ELIGARD [Suspect]
     Active Substance: LEUPROLIDE ACETATE
     Dosage: 45 MILLIGRAM, Q 6 MONTH
     Route: 058
     Dates: start: 20250112
  9. PREDNISONE [Suspect]
     Active Substance: PREDNISONE
     Indication: Product used for unknown indication
  10. XTANDI [Concomitant]
     Active Substance: ENZALUTAMIDE
     Indication: Product used for unknown indication
     Dates: start: 202408

REACTIONS (10)
  - Metastases to spine [Unknown]
  - Pyrexia [Recovered/Resolved]
  - Neutrophil count decreased [Unknown]
  - Night sweats [Unknown]
  - Hot flush [Not Recovered/Not Resolved]
  - Fatigue [Not Recovered/Not Resolved]
  - Weight increased [Unknown]
  - Chest pain [Not Recovered/Not Resolved]
  - Prostatic specific antigen increased [Unknown]
  - Arthralgia [Unknown]

NARRATIVE: CASE EVENT DATE: 20190101
